FAERS Safety Report 16294382 (Version 1)
Quarter: 2019Q2

REPORT INFORMATION
  Report Type: Spontaneous
  Country: US (occurrence: US)
  Receive Date: 20190509
  Receipt Date: 20190509
  Transmission Date: 20190711
  Serious: No
  Sender: FDA-Public Use
  Company Number: US-ROCHE-2183561

PATIENT
  Sex: Male

DRUGS (2)
  1. ESBRIET [Suspect]
     Active Substance: PIRFENIDONE
     Indication: IDIOPATHIC PULMONARY FIBROSIS
     Route: 065
  2. ESBRIET [Suspect]
     Active Substance: PIRFENIDONE
     Route: 065
     Dates: start: 201601

REACTIONS (6)
  - Contusion [Unknown]
  - Skin discolouration [Not Recovered/Not Resolved]
  - Blister [Unknown]
  - Pigmentation disorder [Not Recovered/Not Resolved]
  - Skin discolouration [Unknown]
  - Hypoacusis [Not Recovered/Not Resolved]
